FAERS Safety Report 24017221 (Version 1)
Quarter: 2024Q2

REPORT INFORMATION
  Report Type: Report from Study
  Country: US (occurrence: US)
  Receive Date: 20240627
  Receipt Date: 20240627
  Transmission Date: 20240716
  Serious: Yes (Other)
  Sender: FDA-Public Use
  Company Number: US-JNJFOC-20240656702

PATIENT
  Age: 58 Year
  Sex: Male

DRUGS (1)
  1. SPRAVATO [Suspect]
     Active Substance: ESKETAMINE
     Indication: Depression
     Dosage: 56 MG, TOTAL OF 11 DOSES
     Dates: start: 20240402, end: 20240604

REACTIONS (5)
  - Hallucination [Unknown]
  - Chest discomfort [Unknown]
  - Hangover [Unknown]
  - Fear [Unknown]
  - Headache [Unknown]

NARRATIVE: CASE EVENT DATE: 20240101
